FAERS Safety Report 4478774-3 (Version None)
Quarter: 2004Q4

REPORT INFORMATION
  Report Type: 
  Country: None (occurrence: None)
  Receive Date: 20040923
  Receipt Date: 20040617
  Transmission Date: 20050328
  Serious: No
  Sender: FDA-Public Use
  Company Number: USA040567162

PATIENT
  Age: 56 Year
  Sex: Female

DRUGS (4)
  1. EVISTA [Suspect]
     Dosage: 60 MG/L DAY
     Dates: start: 20020101, end: 20031001
  2. FORTEO [Suspect]
     Indication: OSTEOPOROSIS
     Dates: start: 20040509
  3. CENTRAMINA (AMFETAMINE SULFATE) [Concomitant]
  4. IMITREX [Concomitant]

REACTIONS (11)
  - ABDOMINAL DISTENSION [None]
  - CONSTIPATION [None]
  - DIFFICULTY IN WALKING [None]
  - DYSPNOEA [None]
  - HOT FLUSH [None]
  - MIGRAINE [None]
  - MUSCLE CRAMP [None]
  - PAIN [None]
  - PAIN IN EXTREMITY [None]
  - PALPITATIONS [None]
  - SENSATION OF HEAVINESS [None]
